FAERS Safety Report 19772200 (Version 4)
Quarter: 2021Q4

REPORT INFORMATION
  Report Type: Spontaneous
  Country: US (occurrence: US)
  Receive Date: 20210831
  Receipt Date: 20211201
  Transmission Date: 20220303
  Serious: Yes (Other)
  Sender: FDA-Public Use
  Company Number: US-ORGANON-O2108USA002328

PATIENT
  Sex: Female
  Weight: 107.48 kg

DRUGS (2)
  1. NEXPLANON [Suspect]
     Active Substance: ETONOGESTREL
     Indication: Contraception
     Dosage: 1 IMPLANT, IN LEFT ARM
     Route: 059
     Dates: start: 20210622, end: 2021
  2. NEXPLANON [Concomitant]
     Active Substance: ETONOGESTREL
     Indication: Contraception
     Dosage: 1 IMPLANT
     Route: 059
     Dates: end: 20210622

REACTIONS (3)
  - Device dislocation [Recovered/Resolved]
  - Device kink [Recovered/Resolved]
  - Implant site pain [Not Recovered/Not Resolved]

NARRATIVE: CASE EVENT DATE: 20210101
